FAERS Safety Report 5806274-4 (Version None)
Quarter: 2008Q3

REPORT INFORMATION
  Report Type: 
  Country: None (occurrence: None)
  Receive Date: 20080708
  Receipt Date: 20080701
  Transmission Date: 20090109
  Serious: Yes (Death)
  Sender: FDA-Public Use
  Company Number: 2008SP013212

PATIENT
  Age: 80 Year
  Sex: Female

DRUGS (1)
  1. TEMODAR [Suspect]
     Indication: BRAIN NEOPLASM
     Dosage: ;PO
     Route: 048

REACTIONS (1)
  - DEATH [None]
